FAERS Safety Report 7817729-5 (Version None)
Quarter: 2011Q4

REPORT INFORMATION
  Report Type: 
  Country: None (occurrence: None)
  Receive Date: 20111017
  Receipt Date: 20111006
  Transmission Date: 20120403
  Serious: Yes (Other)
  Sender: FDA-Public Use
  Company Number: US-JNJFOC-20110807596

PATIENT
  Sex: Male

DRUGS (5)
  1. REMICADE [Suspect]
     Route: 042
     Dates: start: 20110617
  2. LIALDA [Concomitant]
     Dosage: DELAYED REALEASE E.C
     Route: 048
     Dates: start: 20080101
  3. CLARITIN [Concomitant]
     Dosage: 1 BY MOUTH 7 DAYS PRIOR TO INFLIXIMAB
     Route: 048
  4. REMICADE [Suspect]
     Indication: COLITIS ULCERATIVE
     Route: 042
     Dates: start: 20080701
  5. MULTI-VITAMINS [Concomitant]
     Indication: VITAMIN SUPPLEMENTATION

REACTIONS (3)
  - SINUSITIS [None]
  - ATRIOVENTRICULAR BLOCK SECOND DEGREE [None]
  - VERTIGO [None]
